FAERS Safety Report 13655325 (Version 2)
Quarter: 2017Q4

REPORT INFORMATION
  Report Type: Report from Study
  Country: BR (occurrence: BR)
  Receive Date: 20170615
  Receipt Date: 20171002
  Transmission Date: 20180320
  Serious: Yes (Death, Other)
  Sender: FDA-Public Use
  Company Number: PHHY2017BR086333

PATIENT
  Sex: Female

DRUGS (1)
  1. EXJADE [Suspect]
     Active Substance: DEFERASIROX
     Indication: ANAEMIA
     Dosage: 500. MG, QD
     Route: 048
     Dates: start: 20141001

REACTIONS (6)
  - Neoplasm malignant [Unknown]
  - Influenza [Unknown]
  - Eating disorder [Unknown]
  - Renal disorder [Fatal]
  - Malaise [Unknown]
  - Weight decreased [Unknown]
